FAERS Safety Report 24838239 (Version 2)
Quarter: 2025Q1

REPORT INFORMATION
  Report Type: Spontaneous
  Country: US (occurrence: US)
  Receive Date: 20250113
  Receipt Date: 20250115
  Transmission Date: 20250409
  Serious: No
  Sender: PFIZER
  Company Number: US-PFIZER INC-202400317278

PATIENT
  Age: 36 Year
  Sex: Female
  Weight: 84.4 kg

DRUGS (1)
  1. HEMABATE [Suspect]
     Active Substance: CARBOPROST TROMETHAMINE
     Indication: Postpartum haemorrhage
     Route: 030
     Dates: start: 20241026, end: 20241026

REACTIONS (3)
  - Injection site rash [Recovered/Resolved]
  - Skin disorder [Recovered/Resolved]
  - Product quality issue [Recovered/Resolved]

NARRATIVE: CASE EVENT DATE: 20241026
